FAERS Safety Report 17420578 (Version 1)
Quarter: 2020Q1

REPORT INFORMATION
  Report Type: Spontaneous
  Country: DE (occurrence: DE)
  Receive Date: 20200214
  Receipt Date: 20200214
  Transmission Date: 20200409
  Serious: Yes (Hospitalization)
  Sender: FDA-Public Use
  Company Number: DE-MALLINCKRODT-T201806974

PATIENT
  Age: 30 Year
  Sex: Male

DRUGS (8)
  1. BLINCYTO [Suspect]
     Active Substance: BLINATUMOMAB
     Dosage: 112 GRAM
     Route: 042
  2. OFIRMEV [Suspect]
     Active Substance: ACETAMINOPHEN
     Indication: PAIN
     Dosage: 1 GRAM, PRN
     Route: 042
     Dates: start: 20170402, end: 201704
  3. BLINCYTO [Suspect]
     Active Substance: BLINATUMOMAB
     Indication: BURKITT^S LYMPHOMA
     Dosage: 112 DOSAGE FORM= ?G/DL
     Route: 042
  4. BLINCYTO [Suspect]
     Active Substance: BLINATUMOMAB
     Dosage: 122 MILLIGRAM, QD
     Route: 065
  5. BLINCYTO [Suspect]
     Active Substance: BLINATUMOMAB
     Dosage: 28 GRAM, QD
     Route: 065
  6. PALLADON [Suspect]
     Active Substance: HYDROMORPHONE
     Indication: PAIN
     Dosage: 1 MILLIGRAM, PRN
     Route: 065
     Dates: start: 20170402, end: 20170405
  7. OFIRMEV [Suspect]
     Active Substance: ACETAMINOPHEN
     Indication: PYREXIA
  8. BLINCYTO [Suspect]
     Active Substance: BLINATUMOMAB
     Dosage: 591 GRAM
     Route: 042

REACTIONS (8)
  - Blood lactate dehydrogenase decreased [Recovered/Resolved]
  - Abdominal pain lower [Unknown]
  - Burkitt^s lymphoma recurrent [Not Recovered/Not Resolved]
  - Skin reaction [Recovered/Resolved]
  - Neurotoxicity [Recovered/Resolved]
  - Cytokine release syndrome [Recovered/Resolved]
  - Ileus paralytic [Recovered/Resolved]
  - Pyrexia [Unknown]

NARRATIVE: CASE EVENT DATE: 20170403
